FAERS Safety Report 7683402-X (Version None)
Quarter: 2011Q3

REPORT INFORMATION
  Report Type: 
  Country: None (occurrence: None)
  Receive Date: 20110812
  Receipt Date: 20110812
  Transmission Date: 20111222
  Serious: Yes (Other)
  Sender: FDA-Public Use
  Company Number: None

PATIENT
  Age: 68 Year
  Sex: Female

DRUGS (4)
  1. OMEPRAZOLE [Concomitant]
  2. REVLIMID [Suspect]
     Indication: MULTIPLE MYELOMA
     Dosage: REVLIMID 10 MG DAILY X21D/28D ORALLY
     Route: 048
     Dates: start: 20100101, end: 20110501
  3. TRIAMTERENE AND HYDROCHLOROTHIAZIDE [Concomitant]
  4. GABAPENTIN [Concomitant]

REACTIONS (7)
  - SENSORY LOSS [None]
  - SUBDURAL HAEMATOMA [None]
  - BRAIN MIDLINE SHIFT [None]
  - ASTHENIA [None]
  - BLOOD COUNT ABNORMAL [None]
  - ESCHERICHIA URINARY TRACT INFECTION [None]
  - ABASIA [None]
